FAERS Safety Report 9239168 (Version 1)
Quarter: 2013Q2

REPORT INFORMATION
  Report Type: Spontaneous
  Country: BE (occurrence: BE)
  Receive Date: 20130418
  Receipt Date: 20130418
  Transmission Date: 20140414
  Serious: Yes (Hospitalization)
  Sender: FDA-Public Use
  Company Number: BE-BAYER-2013-047773

PATIENT
  Age: 71 Year
  Sex: Male
  Weight: 95 kg

DRUGS (7)
  1. XARELTO [Suspect]
     Indication: ATRIAL FIBRILLATION
     Dosage: 20 MG, UNK
     Route: 048
  2. XARELTO [Interacting]
     Indication: CEREBROVASCULAR ACCIDENT PROPHYLAXIS
  3. LIPITOR [Concomitant]
     Indication: HYPERCHOLESTEROLAEMIA
     Dosage: 40 MG, QD
  4. CARDIOASPIRINE [Interacting]
     Dosage: 100 MG, UNK
  5. DIAMICRON [Concomitant]
     Dosage: 30 MG, UNK
  6. CELESTONE [Concomitant]
     Indication: SINUSITIS
     Dosage: 0.5 MG, UNK
     Route: 048
     Dates: start: 20130308, end: 20130310
  7. DILTIAZEM HYDROCHLORIDE [Concomitant]

REACTIONS (4)
  - Abdominal pain [Recovering/Resolving]
  - Abdominal distension [Recovering/Resolving]
  - Muscle haemorrhage [Recovering/Resolving]
  - Haemoglobin decreased [Recovering/Resolving]
